FAERS Safety Report 5744179-8 (Version None)
Quarter: 2008Q2

REPORT INFORMATION
  Report Type: 
  Country: None (occurrence: None)
  Receive Date: 20080520
  Receipt Date: 20080519
  Transmission Date: 20081010
  Serious: Yes (Other)
  Sender: FDA-Public Use
  Company Number: A0682361A

PATIENT
  Sex: Female

DRUGS (2)
  1. ALLI [Suspect]
     Indication: WEIGHT LOSS DIET
     Route: 048
  2. ADDERALL 10 [Suspect]

REACTIONS (27)
  - ABDOMINAL DISTENSION [None]
  - ANOREXIA [None]
  - ASTHENIA [None]
  - ATTENTION DEFICIT/HYPERACTIVITY DISORDER [None]
  - BINGE EATING [None]
  - CHANGE OF BOWEL HABIT [None]
  - CONSTIPATION [None]
  - DEPRESSION [None]
  - DRUG INEFFECTIVE [None]
  - FAECAL INCONTINENCE [None]
  - FLATULENCE [None]
  - FOOD CRAVING [None]
  - FRUSTRATION [None]
  - HEADACHE [None]
  - HUNGER [None]
  - HYPERMETABOLISM [None]
  - ILL-DEFINED DISORDER [None]
  - INCREASED APPETITE [None]
  - INSOMNIA [None]
  - MALAISE [None]
  - NARCOLEPSY [None]
  - NAUSEA [None]
  - OLIGODIPSIA [None]
  - PREGNANCY [None]
  - SOMNOLENCE [None]
  - STARVATION [None]
  - WEIGHT INCREASED [None]
